FAERS Safety Report 6110424-2 (Version None)
Quarter: 2009Q1

REPORT INFORMATION
  Report Type: 
  Country: None (occurrence: None)
  Receive Date: 20090310
  Receipt Date: 20090226
  Transmission Date: 20090719
  Serious: Yes (Death, Hospitalization)
  Sender: FDA-Public Use
  Company Number: FR-ROCHE-506393

PATIENT
  Sex: Male

DRUGS (14)
  1. CAPECITABINE [Suspect]
     Indication: METASTATIC GASTRIC CANCER
     Dosage: GIVEN ON DAYS ONE TO 15 OF EACH 21-DAY CYCLE.
     Route: 048
     Dates: start: 20070412, end: 20070425
  2. IRINOTECAN (NON-ROCHE/NON-COMPARATOR) [Suspect]
     Indication: METASTATIC GASTRIC CANCER
     Dosage: GIVEN IN 250 ML OF SODIUM CHLORIDE 0.9 PERCENT IN 90 MINUTES INFUSION ON DAY ONE OF EACH 14-DAY CYC+
     Route: 042
     Dates: start: 20070201, end: 20070322
  3. FOLINIC ACID [Suspect]
     Indication: METASTATIC GASTRIC CANCER
     Dosage: GIVEN IN 250 CC GLUCOSE 5 PERCENT Y INFUSION IN TWO HOURS ON DAY ONE OF EACH 14-DAY CYCLE.
     Route: 042
     Dates: start: 20070201, end: 20070322
  4. FLUOROURACIL [Suspect]
     Indication: METASTATIC GASTRIC CANCER
     Dosage: GIVEN AS 400 MG/M2 10 MINUTES BOLUS FOLLOWED BY 2400 MG/M2 IN GLUCOSE 5 PERCENT CONTINUOUS INFUSION+
     Route: 050
     Dates: start: 20070201, end: 20070322
  5. EPIRUBICIN [Suspect]
     Indication: METASTATIC GASTRIC CANCER
     Dosage: GIVEN IN 45 CC OF SODIUM CHLORIDE 0.9 PERCENT IN 15 MINUTES OF EACH 21-DAY CYCLE.
     Route: 042
     Dates: start: 20070422, end: 20070422
  6. CISPLATIN [Suspect]
     Indication: METASTATIC GASTRIC CANCER
     Dosage: GIVEN IN 250 CC OF SODIUM CHLORIDE 0.9 PERCENT IN ONE HOUR INFUSION OF EACH 21-DAY CYCLE.
     Route: 042
     Dates: start: 20070412, end: 20070412
  7. TRANSIPEG [Concomitant]
     Dates: start: 20070401, end: 20070426
  8. MOTILYO [Concomitant]
     Dosage: DRUG REPORTED AS MOTILYOC. TDD REPORTED AS 6.
     Dates: start: 20070401, end: 20070426
  9. SKENAN [Concomitant]
     Dates: start: 20070201, end: 20070426
  10. DEROXAT [Concomitant]
     Dates: start: 20020101, end: 20070426
  11. XANAX [Concomitant]
     Dates: start: 20020101, end: 20070426
  12. THERALENE [Concomitant]
     Dates: start: 20020101, end: 20070426
  13. MORPHINE SULFATE [Concomitant]
     Dates: start: 20070201, end: 20070426
  14. PAROXETINE HYDROCHLORIDE [Concomitant]
     Dates: start: 20020101, end: 20070426

REACTIONS (4)
  - ANAEMIA [None]
  - DIARRHOEA [None]
  - LEUKOPENIA [None]
  - SEPTIC SHOCK [None]
